FAERS Safety Report 8598986-7 (Version None)
Quarter: 2012Q3

REPORT INFORMATION
  Report Type: 
  Country: None (occurrence: None)
  Receive Date: 20120816
  Receipt Date: 20120813
  Transmission Date: 20120928
  Serious: Yes (Hospitalization)
  Sender: FDA-Public Use
  Company Number: SE-ROCHE-1101914

PATIENT
  Age: 69 Year
  Sex: Female
  Weight: 60.7 kg

DRUGS (1)
  1. ZELBORAF [Suspect]
     Indication: MALIGNANT MELANOMA
     Dosage: LAST DOSE PRIOR TO SAE: 09/AUG/2012
     Route: 048
     Dates: start: 20110623

REACTIONS (1)
  - DEHYDRATION [None]
